FAERS Safety Report 6928747-3 (Version None)
Quarter: 2010Q3

REPORT INFORMATION
  Report Type: 
  Country: None (occurrence: None)
  Receive Date: 20100809
  Receipt Date: 20100210
  Transmission Date: 20110219
  Serious: No
  Sender: FDA-Public Use
  Company Number: US-000500

PATIENT
  Sex: Male

DRUGS (10)
  1. DEGARELIX (240 MG, 80 MG) [Suspect]
     Indication: PROSTATE CANCER
     Dosage: (240 MG 1X SUBCUTANEOUS), (80 MG 1X/MONTH SUBCUTANEOUS)
     Route: 058
     Dates: start: 20090701, end: 20090701
  2. ASPIRINA BAYER [Concomitant]
  3. MULTI-VITAMIN [Concomitant]
  4. VITAMIN E [Concomitant]
  5. TURMERIC [Concomitant]
  6. SAW PALMETTO [Concomitant]
  7. FISH OIL [Concomitant]
  8. HERBAL PREPARATION [Concomitant]
  9. FLOMAX [Concomitant]
  10. CHEMOTHERAPEUTICS [Concomitant]

REACTIONS (3)
  - INJECTION SITE ERYTHEMA [None]
  - INJECTION SITE PAIN [None]
  - INJECTION SITE SWELLING [None]
